FAERS Safety Report 5502909-4 (Version None)
Quarter: 2007Q4

REPORT INFORMATION
  Report Type: 
  Country: None (occurrence: None)
  Receive Date: 20071031
  Receipt Date: 20071026
  Transmission Date: 20080405
  Serious: Yes (Other)
  Sender: FDA-Public Use
  Company Number: A0602498A

PATIENT
  Sex: Female

DRUGS (7)
  1. PARNATE [Suspect]
     Indication: MAJOR DEPRESSION
     Dosage: 30MG PER DAY
     Route: 048
     Dates: start: 20060101
  2. LITHIUM CARBONATE [Suspect]
  3. ESTRADIOL [Suspect]
  4. LEVOXYL [Suspect]
  5. BENTYL [Suspect]
  6. PROTONIX [Suspect]
  7. RISPERDAL [Concomitant]

REACTIONS (4)
  - CHILLS [None]
  - LIVER FUNCTION TEST ABNORMAL [None]
  - OEDEMA PERIPHERAL [None]
  - PYREXIA [None]
